FAERS Safety Report 9683534 (Version 4)
Quarter: 2014Q1

REPORT INFORMATION
  Report Type: Report from Study
  Country: JP (occurrence: JP)
  Receive Date: 20131112
  Receipt Date: 20140214
  Transmission Date: 20141002
  Serious: Yes (Life-Threatening, Hospitalization, Disabling)
  Sender: FDA-Public Use
  Company Number: JP-SA-2013SA115273

PATIENT
  Age: 69 Year
  Sex: Female
  Weight: 52 kg

DRUGS (14)
  1. PLAVIX [Suspect]
     Indication: PERIPHERAL ARTERIAL OCCLUSIVE DISEASE
     Route: 048
     Dates: start: 20130313, end: 20130712
  2. PLAVIX [Suspect]
     Indication: PERIPHERAL ARTERIAL OCCLUSIVE DISEASE
     Route: 048
     Dates: start: 20130807, end: 20130925
  3. ALOSITOL [Concomitant]
     Route: 048
     Dates: end: 20130714
  4. URSO [Concomitant]
     Route: 048
     Dates: end: 20130714
  5. NEUROVITAN [Concomitant]
     Indication: PROPHYLAXIS
     Route: 048
     Dates: end: 20130714
  6. MEXITIL [Concomitant]
     Indication: TYPE 2 DIABETES MELLITUS
     Route: 048
     Dates: end: 20130714
  7. SENNOSIDES A AND B [Concomitant]
     Route: 048
     Dates: end: 20130714
  8. TAKEPRON [Concomitant]
     Route: 048
  9. COLONEL [Concomitant]
     Route: 048
     Dates: end: 20130714
  10. MAINTATE [Concomitant]
     Route: 048
     Dates: end: 20130714
  11. NESINA [Concomitant]
     Route: 048
     Dates: end: 20130714
  12. CALCIUM CARBONATE [Concomitant]
     Route: 048
     Dates: end: 20130714
  13. PRERAN [Concomitant]
     Route: 048
     Dates: end: 20130714
  14. WARFARIN [Concomitant]
     Route: 048

REACTIONS (4)
  - Peripheral ischaemia [Recovering/Resolving]
  - Pain in extremity [Recovering/Resolving]
  - Skin discolouration [Recovering/Resolving]
  - Disseminated intravascular coagulation [Recovering/Resolving]
